FAERS Safety Report 20223594 (Version 2)
Quarter: 2022Q1

REPORT INFORMATION
  Report Type: Spontaneous
  Country: US (occurrence: US)
  Receive Date: 20211223
  Receipt Date: 20220216
  Transmission Date: 20220423
  Serious: No
  Sender: FDA-Public Use
  Company Number: US-PFIZER INC-202101780614

PATIENT
  Age: 72 Year
  Sex: Female
  Weight: 54.43 kg

DRUGS (3)
  1. SOMATROPIN [Suspect]
     Active Substance: SOMATROPIN
     Indication: Growth hormone deficiency
     Dosage: 0.04 MG
  2. SOMATROPIN [Suspect]
     Active Substance: SOMATROPIN
     Dosage: ONCE AT NIGHT BEFORE SLEEP , 6 DAYS ON AND 1 DAY OFF
  3. SOMATROPIN [Suspect]
     Active Substance: SOMATROPIN
     Dosage: 0.04 MG

REACTIONS (5)
  - Asthenia [Unknown]
  - Headache [Unknown]
  - Dysarthria [Recovering/Resolving]
  - Vitamin B12 decreased [Unknown]
  - Vitamin D decreased [Unknown]

NARRATIVE: CASE EVENT DATE: 20211213
